FAERS Safety Report 9838709 (Version 1)
Quarter: 2013Q4

REPORT INFORMATION
  Report Type: Spontaneous
  Country: US (occurrence: None)
  Receive Date: 20131206
  Receipt Date: 20131206
  Transmission Date: 20140711
  Serious: Yes (Hospitalization)
  Sender: FDA-Public Use
  Company Number: 386645

PATIENT
  Age: 47 Year
  Sex: Female
  Weight: 79.4 kg

DRUGS (3)
  1. NOVOLIN N [Suspect]
     Indication: TYPE 1 DIABETES MELLITUS
     Dosage: 30 U, BID SUBCUTANEOUS
     Route: 058
     Dates: start: 2003
  2. NOVOLOG [Suspect]
     Indication: TYPE 1 DIABETES MELLITUS
     Dosage: SLIDING SCALE, SUBCUTANEOUS
     Route: 058
     Dates: start: 2005
  3. SYNTHROID(LEVOTHYROXINE SODIUM) [Concomitant]

REACTIONS (1)
  - Diabetic ketoacidosis [None]
